FAERS Safety Report 5836569-X (Version None)
Quarter: 2008Q3

REPORT INFORMATION
  Report Type: 
  Country: None (occurrence: None)
  Receive Date: 20080807
  Receipt Date: 20080729
  Transmission Date: 20090109
  Serious: Yes (Other)
  Sender: FDA-Public Use
  Company Number: DE-ABBOTT-08P-062-0467974-00

PATIENT
  Age: 33 Year
  Sex: Female

DRUGS (10)
  1. HUMIRA [Suspect]
     Indication: DRUG USE FOR UNKNOWN INDICATION
     Dates: start: 20070301, end: 20071101
  2. METHOTREXATE [Suspect]
     Indication: DRUG USE FOR UNKNOWN INDICATION
     Dates: end: 20040123
  3. METHOTREXATE [Suspect]
     Dates: start: 20040123, end: 20050128
  4. METHOTREXATE [Suspect]
     Dates: start: 20050128, end: 20070221
  5. METHOTREXATE [Suspect]
     Dates: start: 20080221
  6. ETANERCEPT [Concomitant]
     Indication: DRUG USE FOR UNKNOWN INDICATION
     Dates: start: 20030101, end: 20030414
  7. ETANERCEPT [Concomitant]
     Dosage: 25MG/625MG
     Dates: start: 20030414, end: 20030721
  8. ETANERCEPT [Concomitant]
     Dosage: 25MG/1275MG
     Dates: start: 20030721, end: 20040123
  9. ETANERCEPT [Concomitant]
     Dosage: 25MG/1300MG
     Dates: start: 20040123, end: 20060119
  10. ETANERCEPT [Concomitant]
     Dosage: 50MG/ .MG
     Dates: start: 20060119, end: 20070201

REACTIONS (1)
  - RHEUMATOID NODULE [None]
